FAERS Safety Report 17218494 (Version 1)
Quarter: 2020Q1

REPORT INFORMATION
  Report Type: Spontaneous
  Country: US (occurrence: US)
  Receive Date: 20191230
  Receipt Date: 20191230
  Transmission Date: 20200409
  Serious: Yes (Other)
  Sender: FDA-Public Use
  Company Number: None

PATIENT
  Age: 32 Year
  Sex: Female
  Weight: 45 kg

DRUGS (20)
  1. NIZATIDINE. [Concomitant]
     Active Substance: NIZATIDINE
  2. PHENYTOIN SODIUM. [Concomitant]
     Active Substance: PHENYTOIN SODIUM
  3. CALCIUM [Concomitant]
     Active Substance: CALCIUM
  4. ONDANSTRON ODT [Concomitant]
  5. NITROFURANTOIN MONOHYDRATE MACROCRYSTALS [Suspect]
     Active Substance: NITROFURANTOIN\NITROFURANTOIN MONOHYDRATE
     Indication: URINARY TRACT INFECTION
     Dosage: ?          QUANTITY:14 CAPSULE(S);?
     Route: 048
     Dates: start: 20191229, end: 20191229
  6. LAMOTRIGINE. [Concomitant]
     Active Substance: LAMOTRIGINE
  7. ESCITALOPRAM [Concomitant]
     Active Substance: ESCITALOPRAM OXALATE
  8. MECLIZINE [Concomitant]
     Active Substance: MECLIZINE HYDROCHLORIDE
  9. IBUPROFEN. [Concomitant]
     Active Substance: IBUPROFEN
  10. ALLEGRA [Concomitant]
     Active Substance: FEXOFENADINE HYDROCHLORIDE
  11. VITAMIN C [Concomitant]
     Active Substance: ASCORBIC ACID
  12. LACTASE ENZYME [Concomitant]
  13. PHILLIPS^S LAXATIVE [Concomitant]
  14. LEVALBUTEROL. [Concomitant]
     Active Substance: LEVALBUTEROL
  15. MAGNESIUM OXIDE. [Concomitant]
     Active Substance: MAGNESIUM OXIDE
  16. BUTALBITAL/ACETAMINOPHEN/CAFF [Concomitant]
  17. CENTRUM MULTIVITAMIN [Concomitant]
  18. DILANTIN [Concomitant]
     Active Substance: PHENYTOIN
  19. ASMANEX [Concomitant]
     Active Substance: MOMETASONE FUROATE
  20. PROBIOTIC [Concomitant]
     Active Substance: PROBIOTICS NOS

REACTIONS (14)
  - Urinary tract infection [None]
  - Tinnitus [None]
  - Palpitations [None]
  - Pain [None]
  - Headache [None]
  - Asthma [None]
  - Asthenia [None]
  - Nausea [None]
  - Insomnia [None]
  - Renal pain [None]
  - Anxiety [None]
  - Panic attack [None]
  - Hot flush [None]
  - Abdominal pain upper [None]

NARRATIVE: CASE EVENT DATE: 20191229
